FAERS Safety Report 5800533-7 (Version None)
Quarter: 2008Q3

REPORT INFORMATION
  Report Type: 
  Country: None (occurrence: None)
  Receive Date: 20080701
  Receipt Date: 20080616
  Transmission Date: 20090109
  Serious: Yes (Hospitalization)
  Sender: FDA-Public Use
  Company Number: 2008AL007029

PATIENT
  Sex: Male

DRUGS (3)
  1. DIGOXIN [Suspect]
  2. WARFARIN SODIUM [Concomitant]
  3. HEPARIN [Concomitant]

REACTIONS (2)
  - ARRHYTHMIA [None]
  - FATIGUE [None]
